FAERS Safety Report 5688341-1 (Version None)
Quarter: 2008Q1

REPORT INFORMATION
  Report Type: 
  Country: None (occurrence: None)
  Receive Date: 20080328
  Receipt Date: 20080328
  Transmission Date: 20080703
  Serious: No
  Sender: FDA-Public Use
  Company Number: None

PATIENT
  Age: 81 Year
  Sex: Male
  Weight: 72.5755 kg

DRUGS (4)
  1. SIMVASTATIN [Suspect]
     Indication: HYPERLIPIDAEMIA
     Dosage: 1 TABLET DAILY
     Dates: start: 19900101, end: 20060101
  2. NIACIN [Concomitant]
  3. ASPIRIN [Concomitant]
  4. OMEGA 3 FISH OIL [Concomitant]

REACTIONS (2)
  - ANGER [None]
  - PERSONALITY CHANGE [None]
